FAERS Safety Report 8321411-8 (Version None)
Quarter: 2012Q2

REPORT INFORMATION
  Report Type: 
  Country: None (occurrence: None)
  Receive Date: 20120430
  Receipt Date: 20120423
  Transmission Date: 20120825
  Serious: Yes (Other)
  Sender: FDA-Public Use
  Company Number: DE-UCBSA-056044

PATIENT
  Weight: 120 kg

DRUGS (4)
  1. VIMPAT [Suspect]
     Indication: EPILEPSY
     Dosage: 100 MG(MORNING AND EVENING)
     Dates: start: 20120401
  2. LEVETIRACETAM [Suspect]
     Indication: GRAND MAL CONVULSION
     Dosage: 1500 (MORNING AND EVENING)
     Dates: start: 20120101
  3. VALPROATE CHRONO WINTHROP [Suspect]
     Indication: EPILEPSY
     Dosage: SUSTAINED RELEASE; 750 (MORNING AND EVENING)
     Dates: start: 20120401
  4. TEMOZOLOMIDE [Concomitant]
     Indication: NEOPLASM PROGRESSION
     Dosage: 5/28 DAYS, 200 MG/M^2 BODY SURFACE
     Dates: start: 20101101

REACTIONS (4)
  - PARTIAL SEIZURES [None]
  - APHASIA [None]
  - FATIGUE [None]
  - GAIT DISTURBANCE [None]
